FAERS Safety Report 12254475 (Version 1)
Quarter: 2016Q2

REPORT INFORMATION
  Report Type: Spontaneous
  Country: DE (occurrence: DE)
  Receive Date: 20160411
  Receipt Date: 20160411
  Transmission Date: 20160815
  Serious: Yes (Hospitalization)
  Sender: FDA-Public Use
  Company Number: DE-TEVA-648854ISR

PATIENT
  Age: 60 Year
  Sex: Male
  Weight: 117 kg

DRUGS (5)
  1. FLUDARABINE [Suspect]
     Active Substance: FLUDARABINE PHOSPHATE
     Indication: BONE MARROW CONDITIONING REGIMEN
     Dosage: 320 MILLIGRAM DAILY;
     Route: 042
     Dates: start: 20151203, end: 20151207
  2. CICLOSPORINE [Suspect]
     Active Substance: CYCLOSPORINE
     Indication: GRAFT VERSUS HOST DISEASE
     Route: 048
     Dates: start: 20151208
  3. PREDNISOLON [Suspect]
     Active Substance: PREDNISOLONE
     Indication: GRAFT VERSUS HOST DISEASE
     Dosage: 60 MILLIGRAM DAILY;
     Route: 048
     Dates: start: 20160204
  4. BUSULFAN PIERRE FABRE [Suspect]
     Active Substance: BUSULFAN
     Indication: BONE MARROW CONDITIONING REGIMEN
     Dosage: 624 MILLIGRAM DAILY;
     Route: 042
     Dates: start: 20151205, end: 20151206
  5. ATG [Suspect]
     Active Substance: LAPINE T-LYMPHOCYTE IMMUNE GLOBULIN
     Indication: BONE MARROW CONDITIONING REGIMEN
     Dosage: 3000 MILLIGRAM DAILY;
     Route: 042
     Dates: start: 20151205, end: 20151207

REACTIONS (3)
  - Pyrexia [Not Recovered/Not Resolved]
  - Fatigue [None]
  - Cough [None]

NARRATIVE: CASE EVENT DATE: 20160327
